FAERS Safety Report 21196440 (Version 3)
Quarter: 2025Q3

REPORT INFORMATION
  Report Type: Report from Study
  Country: JP (occurrence: JP)
  Receive Date: 20220810
  Receipt Date: 20250904
  Transmission Date: 20251021
  Serious: Yes (Other)
  Sender: EMD SERONO INC
  Company Number: JP-Merck Healthcare KGaA-9341612

PATIENT
  Age: 78 Year
  Sex: Male

DRUGS (4)
  1. TEPMETKO [Suspect]
     Active Substance: TEPOTINIB HYDROCHLORIDE
     Indication: Lung adenocarcinoma
     Dates: start: 20210208
  2. TEPMETKO [Suspect]
     Active Substance: TEPOTINIB HYDROCHLORIDE
     Dosage: FOR 4 WEEKS AND 8 WEEKS
  3. MIANSERIN [Concomitant]
     Active Substance: MIANSERIN
     Indication: Product used for unknown indication
  4. MIANSERIN [Concomitant]
     Active Substance: MIANSERIN

REACTIONS (3)
  - Renal impairment [Unknown]
  - Oedema [Recovered/Resolved]
  - Blood creatinine increased [Unknown]
